FAERS Safety Report 11906508 (Version 1)
Quarter: 2016Q1

REPORT INFORMATION
  Report Type: Spontaneous
  Country: US (occurrence: US)
  Receive Date: 20160111
  Receipt Date: 20160111
  Transmission Date: 20160526
  Serious: No
  Sender: FDA-Public Use
  Company Number: US-PFIZER INC-2016002288

PATIENT
  Age: 71 Year
  Sex: Female
  Weight: 64.41 kg

DRUGS (8)
  1. METFORMIN [Concomitant]
     Active Substance: METFORMIN HYDROCHLORIDE
     Indication: DIABETES MELLITUS
     Dosage: 500 MG, 2X/DAY
     Route: 048
  2. VALSARTAN. [Concomitant]
     Active Substance: VALSARTAN
     Indication: PROPHYLAXIS
  3. CLON [Concomitant]
  4. VALSARTAN. [Concomitant]
     Active Substance: VALSARTAN
     Indication: HYPERTENSION
     Dosage: 160-25MG, 1X/DAY
  5. EFFEXOR [Concomitant]
     Active Substance: VENLAFAXINE HYDROCHLORIDE
     Indication: ANXIETY
     Dosage: 150MG CAPSULE EVERY MORNING, DAILY
     Route: 048
  6. CLONAPINE [Concomitant]
     Indication: ANXIETY
     Dosage: 5MG TABLET HALF A TABLET IN MORNING AND ONE TABLET AT NIGHT, 2X/DAY
  7. OXYCODONE [Concomitant]
     Active Substance: OXYCODONE
     Indication: PAIN
     Dosage: 5 MG, AS NEEDED
  8. SUTENT [Suspect]
     Active Substance: SUNITINIB MALATE
     Indication: GASTRIC CANCER
     Dosage: 37.5 MG (37.5MG CAPSULE ONCE A NIGHT), 1X/DAY
     Route: 048

REACTIONS (2)
  - Gastrooesophageal reflux disease [Not Recovered/Not Resolved]
  - Pain [Not Recovered/Not Resolved]
